FAERS Safety Report 21003809 (Version 1)
Quarter: 2022Q2

REPORT INFORMATION
  Report Type: Spontaneous
  Country: DK (occurrence: DK)
  Receive Date: 20220624
  Receipt Date: 20220624
  Transmission Date: 20220721
  Serious: Yes (Hospitalization)
  Sender: FDA-Public Use
  Company Number: DK-Accord-266100

PATIENT
  Age: 79 Year
  Sex: Female
  Weight: 87.9 kg

DRUGS (35)
  1. RITUXIMAB [Suspect]
     Active Substance: RITUXIMAB
     Indication: Product used for unknown indication
     Dosage: SINGLE
     Route: 042
     Dates: start: 20210406, end: 20210406
  2. RITUXIMAB [Suspect]
     Active Substance: RITUXIMAB
     Dosage: SINGLE
     Route: 042
     Dates: start: 20210504, end: 20210504
  3. RITUXIMAB [Suspect]
     Active Substance: RITUXIMAB
     Dosage: SINGLE, MOST RECENT DOSE ON 08/MAR/2021
     Route: 042
     Dates: start: 20210308
  4. EPCORITAMAB [Suspect]
     Active Substance: EPCORITAMAB
     Indication: Product used for unknown indication
     Dosage: FULL DOSE, WEEKLY
     Route: 058
     Dates: start: 20210511
  5. EPCORITAMAB [Suspect]
     Active Substance: EPCORITAMAB
     Dosage: FULL DOSE, WEEKLY
     Route: 058
     Dates: start: 20210322, end: 20210420
  6. EPCORITAMAB [Suspect]
     Active Substance: EPCORITAMAB
     Dosage: PRIMING DOSE, SINGLE
     Route: 058
     Dates: start: 20210308, end: 20210308
  7. EPCORITAMAB [Suspect]
     Active Substance: EPCORITAMAB
     Dosage: INTERMEDIATE DOSE, SINGLE, MOST RECENT DOSE ON 15/MAR/2021
     Route: 058
     Dates: start: 20210315
  8. BENDAMUSTINE HYDROCHLORIDE [Suspect]
     Active Substance: BENDAMUSTINE HYDROCHLORIDE
     Indication: Product used for unknown indication
     Route: 042
     Dates: start: 20210308, end: 20210309
  9. BENDAMUSTINE HYDROCHLORIDE [Suspect]
     Active Substance: BENDAMUSTINE HYDROCHLORIDE
     Route: 042
     Dates: start: 20210406, end: 20210407
  10. BENDAMUSTINE HYDROCHLORIDE [Suspect]
     Active Substance: BENDAMUSTINE HYDROCHLORIDE
     Dosage: QD, MOST RECENT DOSE ON 05/MAY/2021
     Route: 042
     Dates: start: 20210504
  11. SODIUM CHLORIDE [Concomitant]
     Active Substance: SODIUM CHLORIDE
  12. SULFAMETHOXAZOLE [Concomitant]
     Active Substance: SULFAMETHOXAZOLE
     Dates: start: 20210308, end: 20210510
  13. ACICLODAN [Concomitant]
     Dates: start: 20210308, end: 20211004
  14. TOCILIZUMAB [Concomitant]
     Active Substance: TOCILIZUMAB
     Route: 065
     Dates: start: 20210427, end: 20210427
  15. CLOBETASOL [Concomitant]
     Active Substance: CLOBETASOL
     Dates: start: 20210429, end: 20210518
  16. ACETAMINOPHEN [Concomitant]
     Active Substance: ACETAMINOPHEN
     Dates: start: 20210308
  17. ACETAMINOPHEN [Concomitant]
     Active Substance: ACETAMINOPHEN
     Route: 048
     Dates: start: 20210511, end: 20210511
  18. PIPERACILLIN SODIUM [Concomitant]
     Active Substance: PIPERACILLIN SODIUM
     Dates: start: 20210426, end: 20210428
  19. CLEMASTINE FUMARATE [Concomitant]
     Active Substance: CLEMASTINE FUMARATE
     Dates: start: 20210412, end: 20210607
  20. CLEMASTINE FUMARATE [Concomitant]
     Active Substance: CLEMASTINE FUMARATE
     Route: 048
     Dates: start: 20210511, end: 20210511
  21. PRAMIPEXOLE [Concomitant]
     Active Substance: PRAMIPEXOLE
     Dates: start: 20120823
  22. LOSARTAN POTASSIUM [Concomitant]
     Active Substance: LOSARTAN POTASSIUM
     Dates: start: 20131122, end: 20210429
  23. CALCIUM [Concomitant]
     Active Substance: CALCIUM
     Dates: start: 20210504
  24. NASONEX [Concomitant]
     Active Substance: MOMETASONE FUROATE
     Dates: start: 20210415, end: 20210509
  25. KALIUMKLORID [Concomitant]
     Dates: start: 20210308
  26. SODIUM BICARBONATE [Concomitant]
     Active Substance: SODIUM BICARBONATE
     Dates: start: 20210315, end: 20210426
  27. SOLU-MEDROL [Concomitant]
     Active Substance: METHYLPREDNISOLONE SODIUM SUCCINATE
     Dates: start: 20210308, end: 20210406
  28. PREDNISOLONE [Concomitant]
     Active Substance: PREDNISOLONE
     Route: 048
     Dates: start: 20210511, end: 20210513
  29. PREDNISOLONE [Concomitant]
     Active Substance: PREDNISOLONE
     Dates: start: 20210309, end: 20210503
  30. FUROSEMIDE [Concomitant]
     Active Substance: FUROSEMIDE
     Dates: start: 20210308
  31. ALLOPURINOL [Concomitant]
     Active Substance: ALLOPURINOL
     Dates: start: 20210308, end: 20210510
  32. TRIMETHOPRIM [Concomitant]
     Active Substance: TRIMETHOPRIM
  33. POTASSIUM CHLORIDE [Concomitant]
     Active Substance: POTASSIUM CHLORIDE
  34. VITAMIN D3 [Concomitant]
     Active Substance: CHOLECALCIFEROL
  35. TAZOBACTAM SODIUM [Concomitant]
     Active Substance: TAZOBACTAM SODIUM

REACTIONS (2)
  - Abdominal pain [Recovered/Resolved]
  - Diarrhoea [Recovered/Resolved]

NARRATIVE: CASE EVENT DATE: 20210509
